FAERS Safety Report 16048745 (Version 1)
Quarter: 2019Q1

REPORT INFORMATION
  Report Type: Spontaneous
  Country: US (occurrence: US)
  Receive Date: 20190208
  Receipt Date: 20190208
  Transmission Date: 20190418
  Serious: No
  Sender: FDA-Public Use
  Company Number: None

PATIENT
  Age: 38 Year
  Sex: Male

DRUGS (1)
  1. TREMFYA [Suspect]
     Active Substance: GUSELKUMAB
     Dosage: ?          OTHER FREQUENCY:WK4ASDIR;?
     Route: 058
     Dates: start: 201803

REACTIONS (2)
  - Pulmonary congestion [None]
  - Nasopharyngitis [None]
